FAERS Safety Report 15260417 (Version 1)
Quarter: 2018Q3

REPORT INFORMATION
  Report Type: Other
  Country: FR (occurrence: FR)
  Receive Date: 20180809
  Receipt Date: 20180809
  Transmission Date: 20181010
  Serious: Yes (Other)
  Sender: FDA-Public Use
  Company Number: FR-ASCEND THERAPEUTICS-2053506

PATIENT
  Sex: Male

DRUGS (3)
  1. CYPROTERONE ACETATE (CYPROTERONE ACETATE) [Concomitant]
  2. CYPROTERONE ACETATE (CYPROTERONE ACETATE) [Concomitant]
  3. ESTROGEL [Suspect]
     Active Substance: ESTRADIOL
     Indication: GENDER REASSIGNMENT THERAPY

REACTIONS (2)
  - Off label use [None]
  - Breast cancer [Unknown]
